FAERS Safety Report 25768855 (Version 2)
Quarter: 2025Q3

REPORT INFORMATION
  Report Type: Spontaneous
  Country: US (occurrence: US)
  Receive Date: 20250905
  Receipt Date: 20250924
  Transmission Date: 20251021
  Serious: No
  Sender: APELLIS PHARMACEUTICALS
  Company Number: US-APELLIS-2025-APL-0001697

PATIENT
  Weight: 62.596 kg

DRUGS (1)
  1. EMPAVELI [Suspect]
     Active Substance: PEGCETACOPLAN
     Indication: Paroxysmal nocturnal haemoglobinuria
     Route: 058
     Dates: start: 20240607

REACTIONS (5)
  - Pruritus [Not Recovered/Not Resolved]
  - Urticaria [Unknown]
  - Seasonal allergy [Unknown]
  - Hypersensitivity [Unknown]
  - Skin test positive [Unknown]

NARRATIVE: CASE EVENT DATE: 20250418
